FAERS Safety Report 4401155-5 (Version None)
Quarter: 2004Q3

REPORT INFORMATION
  Report Type: 
  Country: None (occurrence: None)
  Receive Date: 20040907
  Receipt Date: 20031121
  Transmission Date: 20050211
  Serious: Yes (Other)
  Sender: FDA-Public Use
  Company Number: US-BRISTOL-MYERS SQUIBB COMPANY-12441689

PATIENT
  Age: 65 Year
  Sex: Female
  Weight: 62 kg

DRUGS (7)
  1. COUMADIN [Suspect]
     Indication: HEART VALVE REPLACEMENT
     Dosage: DOSE USING 5 MG TABS: M-W-F 5 MG;  SA-SU, TU-TH 7.5 MG (1.5 TABS). RESTART 13-NOV.
     Route: 048
     Dates: start: 20011101
  2. PLAQUENIL [Concomitant]
  3. METHOTREXATE [Concomitant]
  4. HUMIRA [Concomitant]
     Route: 051
  5. ZOLOFT [Concomitant]
  6. TOPROL-XL [Concomitant]
  7. FOLIC ACID [Concomitant]
     Dosage: ^PRESCRIPTION STRENGTH^

REACTIONS (2)
  - INTERNATIONAL NORMALISED RATIO ABNORMAL [None]
  - PROTHROMBIN TIME PROLONGED [None]
